FAERS Safety Report 17339339 (Version 1)
Quarter: 2020Q1

REPORT INFORMATION
  Report Type: Spontaneous
  Country: US (occurrence: US)
  Receive Date: 20200128
  Receipt Date: 20200128
  Transmission Date: 20200409
  Serious: Yes (Hospitalization)
  Sender: FDA-Public Use
  Company Number: None

PATIENT
  Age: 74 Year
  Sex: Female

DRUGS (13)
  1. METOPROL SUC TAB 50MG ER [Concomitant]
  2. MONTELUKAST [Concomitant]
     Active Substance: MONTELUKAST SODIUM
  3. HYDROXYZ HCL TAB 25MG [Concomitant]
  4. POT CHLORIDE TAB 20MEQ ER [Concomitant]
  5. WIXELA INHUB [Concomitant]
     Active Substance: FLUTICASONE PROPIONATE\SALMETEROL XINAFOATE
  6. AZELASTINE. [Concomitant]
     Active Substance: AZELASTINE HYDROCHLORIDE
  7. IBRANCE [Suspect]
     Active Substance: PALBOCICLIB
     Indication: NEOPLASM MALIGNANT
     Dosage: ?          OTHER FREQUENCY:DAILY-21 DAYS;?
     Route: 048
     Dates: start: 20190403
  8. FUROSEMIDE TAB 20MG [Concomitant]
  9. LEVOCETIRIZI TAB 5MG [Concomitant]
  10. ALBUTEROL. [Concomitant]
     Active Substance: ALBUTEROL
  11. AMLODIPINE TAB 5MG [Concomitant]
  12. TOLTERODINE CAP 4MG ER [Concomitant]
     Active Substance: TOLTERODINE
  13. LOSARTAN POT TAB 100MG [Concomitant]

REACTIONS (3)
  - Pulmonary pain [None]
  - Gastric ulcer [None]
  - Therapy cessation [None]

NARRATIVE: CASE EVENT DATE: 20200127
